FAERS Safety Report 14984415 (Version 1)
Quarter: 2018Q2

REPORT INFORMATION
  Report Type: Spontaneous
  Country: CN (occurrence: CN)
  Receive Date: 20180607
  Receipt Date: 20180607
  Transmission Date: 20180711
  Serious: Yes (Other)
  Sender: FDA-Public Use
  Company Number: CN-MYLANLABS-2018M1037885

PATIENT
  Age: 48 Year
  Sex: Female

DRUGS (1)
  1. TRIAMCINOLONE [Suspect]
     Active Substance: TRIAMCINOLONE
     Indication: ENDOCRINE OPHTHALMOPATHY
     Dosage: RECEIVED FOUR SUPERIOR-NASAL PERIOCULAR INJECTION AROUND EYES.
     Route: 050

REACTIONS (1)
  - Retinal artery occlusion [Recovered/Resolved]
